FAERS Safety Report 21762401 (Version 1)
Quarter: 2022Q4

REPORT INFORMATION
  Report Type: Report from Study
  Country: PR (occurrence: PR)
  Receive Date: 20221221
  Receipt Date: 20221221
  Transmission Date: 20230112
  Serious: No
  Sender: FDA-Public Use
  Company Number: PR-ABBVIE-4245095

PATIENT
  Sex: Female
  Weight: 63.502 kg

DRUGS (1)
  1. VENCLEXTA [Suspect]
     Active Substance: VENETOCLAX
     Indication: Acute myeloid leukaemia
     Dosage: PARTIAL DATE OF DISCONTINUATION OF 2022 WAS NOT CAPTURED
     Route: 048
     Dates: start: 202210

REACTIONS (2)
  - Abdominal discomfort [Unknown]
  - Vomiting [Unknown]
